FAERS Safety Report 12086964 (Version 1)
Quarter: 2016Q1

REPORT INFORMATION
  Report Type: Spontaneous
  Country: US (occurrence: US)
  Receive Date: 20160217
  Receipt Date: 20160217
  Transmission Date: 20160526
  Serious: No
  Sender: FDA-Public Use
  Company Number: US-ALLERGAN-1507720US

PATIENT
  Sex: Male

DRUGS (2)
  1. RESTASIS [Suspect]
     Active Substance: CYCLOSPORINE
     Indication: DRY EYE
     Dosage: 1 DROP INTO EACH EYE IN THE MORNING
     Route: 047
     Dates: start: 2010
  2. SODIUM CHLORIDE. [Concomitant]
     Active Substance: SODIUM CHLORIDE
     Indication: DRY EYE
     Dosage: UNK
     Route: 047
     Dates: start: 20150426

REACTIONS (4)
  - Superficial injury of eye [Not Recovered/Not Resolved]
  - Ocular hyperaemia [Recovering/Resolving]
  - Inappropriate schedule of drug administration [Unknown]
  - Eye irritation [Recovering/Resolving]
